FAERS Safety Report 21813986 (Version 3)
Quarter: 2023Q4

REPORT INFORMATION
  Report Type: Spontaneous
  Country: FR (occurrence: FR)
  Receive Date: 20230104
  Receipt Date: 20231026
  Transmission Date: 20240110
  Serious: Yes (Hospitalization)
  Sender: FDA-Public Use
  Company Number: FR-SUN PHARMACEUTICAL INDUSTRIES LTD-2022RR-371248

PATIENT
  Age: 75 Year
  Sex: Female
  Weight: 66 kg

DRUGS (14)
  1. PANTOPRAZOLE [Suspect]
     Active Substance: PANTOPRAZOLE
     Indication: Gastrooesophageal reflux disease
     Dosage: UNK
     Route: 065
  2. CLARITHROMYCIN [Suspect]
     Active Substance: CLARITHROMYCIN
     Indication: Lung disorder
     Dosage: 1000 MILLIGRAM, 500 MG 2X DAY
     Route: 065
     Dates: start: 20220510, end: 20220512
  3. CEFTRIAXONE [Suspect]
     Active Substance: CEFTRIAXONE\CEFTRIAXONE SODIUM
     Indication: Pyelonephritis acute
     Dosage: UNK
     Route: 040
     Dates: start: 20220508, end: 20220512
  4. AMDINOCILLIN PIVOXIL [Suspect]
     Active Substance: AMDINOCILLIN PIVOXIL
     Indication: Pyelonephritis acute
     Dosage: UNK
     Route: 048
     Dates: start: 20220506, end: 20220508
  5. ELIQUIS [Suspect]
     Active Substance: APIXABAN
     Indication: Atrial fibrillation
     Dosage: 2.5 MG 2X/DAY
     Route: 048
     Dates: end: 20220509
  6. CALCIPARINE [Suspect]
     Active Substance: HEPARIN CALCIUM
     Indication: Atrial fibrillation
     Dosage: UNK
     Route: 003
     Dates: start: 20220509, end: 20220515
  7. AMIKACIN [Suspect]
     Active Substance: AMIKACIN
     Indication: Pyelonephritis acute
     Dosage: 1 GRAM
     Route: 040
     Dates: start: 20220509, end: 20220509
  8. LEVOTHYROXINE [Concomitant]
     Active Substance: LEVOTHYROXINE
     Indication: Product used for unknown indication
     Dosage: UNK
     Route: 065
  9. ROWASA [Concomitant]
     Active Substance: MESALAMINE
     Indication: Product used for unknown indication
     Dosage: UNK
     Route: 065
  10. AUGMENTIN [Concomitant]
     Active Substance: AMOXICILLIN\CLAVULANATE POTASSIUM
     Indication: Product used for unknown indication
     Dosage: UNK
     Route: 065
  11. URAPIDIL [Concomitant]
     Active Substance: URAPIDIL
     Indication: Product used for unknown indication
     Dosage: UNK
     Route: 065
  12. FOSFOMYCIN TROMETHAMINE [Concomitant]
     Active Substance: FOSFOMYCIN TROMETHAMINE
     Indication: Product used for unknown indication
     Dosage: UNK
     Route: 065
  13. FUROSEMIDE [Concomitant]
     Active Substance: FUROSEMIDE
     Indication: Product used for unknown indication
     Dosage: UNK
     Route: 065
  14. BISOPROLOL FUMARATE [Concomitant]
     Active Substance: BISOPROLOL FUMARATE
     Indication: Product used for unknown indication
     Dosage: UNK
     Route: 065

REACTIONS (1)
  - Hepatic enzyme increased [Recovering/Resolving]

NARRATIVE: CASE EVENT DATE: 20220511
